FAERS Safety Report 13687805 (Version 3)
Quarter: 2017Q4

REPORT INFORMATION
  Report Type: Report from Study
  Country: IT (occurrence: IT)
  Receive Date: 20170625
  Receipt Date: 20171017
  Transmission Date: 20180320
  Serious: Yes (Hospitalization, Other)
  Sender: FDA-Public Use
  Company Number: IT-MYLANLABS-2017M1036720

PATIENT
  Age: 41 Year
  Sex: Female

DRUGS (4)
  1. CARBOLITHIUM [Concomitant]
     Active Substance: LITHIUM CARBONATE
     Indication: PRODUCT USED FOR UNKNOWN INDICATION
     Dosage: UNK
  2. LORAZEPAM. [Suspect]
     Active Substance: LORAZEPAM
     Indication: ANXIETY
     Dosage: 10 ML TOTAL
     Route: 048
     Dates: start: 20170430, end: 20170430
  3. QUETIAPINE FUMARATE. [Concomitant]
     Active Substance: QUETIAPINE FUMARATE
     Indication: PRODUCT USED FOR UNKNOWN INDICATION
     Dosage: UNK
  4. ESCITALOPRAM [Suspect]
     Active Substance: ESCITALOPRAM OXALATE
     Indication: DEPRESSION
     Dosage: 6 DF TOTAL
     Route: 048
     Dates: start: 20170430, end: 20170430

REACTIONS (6)
  - Intentional self-injury [Recovered/Resolved]
  - Slow speech [Recovered/Resolved]
  - Overdose [Recovered/Resolved]
  - Drug abuse [Recovered/Resolved]
  - Sopor [Recovered/Resolved]
  - Electrocardiogram QT prolonged [Recovered/Resolved]

NARRATIVE: CASE EVENT DATE: 20170430
